FAERS Safety Report 5217274-X (Version None)
Quarter: 2007Q1

REPORT INFORMATION
  Report Type: 
  Country: None (occurrence: None)
  Receive Date: 20070124
  Receipt Date: 20060328
  Transmission Date: 20070707
  Serious: No
  Sender: FDA-Public Use
  Company Number: US-GLAXOSMITHKLINE-A0580648A

PATIENT
  Sex: Male

DRUGS (4)
  1. PAXIL CR [Suspect]
     Indication: PANIC DISORDER
     Dosage: 12.5MG PER DAY
     Route: 048
     Dates: start: 20050801
  2. PAXIL [Suspect]
     Indication: PANIC DISORDER
     Dosage: 10MG PER DAY
     Route: 048
     Dates: start: 19970101, end: 20040701
  3. PAXIL [Suspect]
     Route: 048
  4. ATIVAN [Concomitant]

REACTIONS (4)
  - ADVERSE DRUG REACTION [None]
  - INSOMNIA [None]
  - PANIC ATTACK [None]
  - VERTIGO [None]
